FAERS Safety Report 23841881 (Version 1)
Quarter: 2024Q2

REPORT INFORMATION
  Report Type: Spontaneous
  Country: US (occurrence: US)
  Receive Date: 20240510
  Receipt Date: 20240510
  Transmission Date: 20240716
  Serious: No
  Sender: FDA-Public Use
  Company Number: US-ABBVIE-5752359

PATIENT
  Age: 64 Year
  Sex: Female

DRUGS (3)
  1. BOTOX COSMETIC [Suspect]
     Active Substance: ONABOTULINUMTOXINA
     Indication: Skin wrinkling
     Dosage: TIME INTERVAL: AS NECESSARY: 18U IN FRONTALIS
     Route: 065
     Dates: start: 20240409, end: 20240409
  2. BOTOX COSMETIC [Suspect]
     Active Substance: ONABOTULINUMTOXINA
     Indication: Skin wrinkling
     Dosage: TIME INTERVAL: AS NECESSARY: 15U GLABELLA
     Route: 065
     Dates: start: 20240409, end: 20240409
  3. BOTOX COSMETIC [Suspect]
     Active Substance: ONABOTULINUMTOXINA
     Indication: Skin wrinkling
     Dosage: TIME INTERVAL: AS NECESSARY: 12U CROW^S FEET (6 UNITS EACH)
     Route: 065
     Dates: start: 20240409, end: 20240409

REACTIONS (4)
  - Diplopia [Not Recovered/Not Resolved]
  - Gait disturbance [Unknown]
  - Suspected counterfeit product [Unknown]
  - Lethargy [Unknown]

NARRATIVE: CASE EVENT DATE: 20240429
